FAERS Safety Report 15716252 (Version 1)
Quarter: 2018Q4

REPORT INFORMATION
  Report Type: Spontaneous
  Country: US (occurrence: US)
  Receive Date: 20181213
  Receipt Date: 20181213
  Transmission Date: 20190205
  Serious: No
  Sender: FDA-Public Use
  Company Number: PHEH2018US051274

PATIENT
  Sex: Female

DRUGS (2)
  1. DIPHENOXYLATE [Concomitant]
     Active Substance: DIPHENOXYLATE
     Indication: PRODUCT USED FOR UNKNOWN INDICATION
     Route: 065
  2. AFINITOR [Suspect]
     Active Substance: EVEROLIMUS
     Indication: PRODUCT USED FOR UNKNOWN INDICATION
     Dosage: 5 OT, QD
     Route: 065
     Dates: start: 20181121

REACTIONS (8)
  - Alopecia [Unknown]
  - Fear [Unknown]
  - Feeling abnormal [Unknown]
  - Mood altered [Unknown]
  - Hypersomnia [Unknown]
  - Fatigue [Unknown]
  - Heart rate abnormal [Unknown]
  - Decreased appetite [Unknown]
